FAERS Safety Report 14326866 (Version 1)
Quarter: 2017Q4

REPORT INFORMATION
  Report Type: Spontaneous
  Country: US (occurrence: US)
  Receive Date: 20171226
  Receipt Date: 20171226
  Transmission Date: 20180321
  Serious: Yes (Hospitalization)
  Sender: FDA-Public Use
  Company Number: None

PATIENT
  Age: 69 Year
  Sex: Male

DRUGS (1)
  1. IBRUTINIB [Suspect]
     Active Substance: IBRUTINIB
     Indication: MANTLE CELL LYMPHOMA
     Route: 048
     Dates: start: 20171127, end: 20171205

REACTIONS (4)
  - Thrombocytopenia [None]
  - Epistaxis [None]
  - Dyspnoea [None]
  - Haemorrhage [None]

NARRATIVE: CASE EVENT DATE: 20171205
